FAERS Safety Report 16402261 (Version 3)
Quarter: 2019Q3

REPORT INFORMATION
  Report Type: Spontaneous
  Country: US (occurrence: US)
  Receive Date: 20190607
  Receipt Date: 20190712
  Transmission Date: 20191004
  Serious: No
  Sender: FDA-Public Use
  Company Number: US-UNITED THERAPEUTICS-UNT-2019-009773

PATIENT
  Age: 29 Year
  Sex: Female
  Weight: 80.73 kg

DRUGS (2)
  1. ADCIRCA [Concomitant]
     Active Substance: TADALAFIL
     Indication: PULMONARY ARTERIAL HYPERTENSION
     Dosage: UNK
     Route: 065
  2. REMODULIN [Suspect]
     Active Substance: TREPROSTINIL
     Indication: PULMONARY ARTERIAL HYPERTENSION
     Dosage: 0.074 ?G/KG, CONTINUING
     Route: 041
     Dates: start: 20160623

REACTIONS (5)
  - Headache [Unknown]
  - Device leakage [Unknown]
  - Dermatitis contact [Not Recovered/Not Resolved]
  - Gastrointestinal disorder [Unknown]
  - Bendopnoea [Unknown]

NARRATIVE: CASE EVENT DATE: 201905
